FAERS Safety Report 9457642 (Version 1)
Quarter: 2013Q3

REPORT INFORMATION
  Report Type: Spontaneous
  Country: US (occurrence: US)
  Receive Date: 20130814
  Receipt Date: 20130814
  Transmission Date: 20140515
  Serious: No
  Sender: FDA-Public Use
  Company Number: US-PFIZER INC-2013234630

PATIENT
  Age: 62 Year
  Sex: Female
  Weight: 63.49 kg

DRUGS (3)
  1. NEURONTIN [Suspect]
     Indication: BURNING SENSATION
     Dosage: 300 MG, 1X/DAY
     Route: 048
     Dates: start: 20130702, end: 2013
  2. NEURONTIN [Suspect]
     Indication: NEUROPATHY PERIPHERAL
     Dosage: 600 MG, 1X/DAY
     Route: 048
     Dates: start: 2013, end: 2013
  3. NEURONTIN [Suspect]
     Dosage: 200 MG, 1X/DAY
     Route: 048
     Dates: start: 2013

REACTIONS (2)
  - Off label use [Unknown]
  - Pruritus [Not Recovered/Not Resolved]
